FAERS Safety Report 4502262-9 (Version None)
Quarter: 2004Q4

REPORT INFORMATION
  Report Type: 
  Country: None (occurrence: None)
  Receive Date: 20041116
  Receipt Date: 20041108
  Transmission Date: 20050328
  Serious: Yes (Death)
  Sender: FDA-Public Use
  Company Number: FR-BRISTOL-MYERS SQUIBB COMPANY-12758165

PATIENT
  Age: 84 Year
  Sex: Female

DRUGS (8)
  1. HYDREA [Suspect]
     Route: 048
  2. CORDARONE [Suspect]
     Route: 048
  3. VEINAMITOL [Suspect]
     Route: 048
  4. VASTAREL [Suspect]
     Route: 048
  5. RANIPLEX [Suspect]
     Route: 048
  6. ZOCOR [Suspect]
     Route: 048
  7. ACUITEL [Suspect]
     Route: 048
  8. PLAVIX [Concomitant]
     Route: 048

REACTIONS (1)
  - INTERSTITIAL LUNG DISEASE [None]
